FAERS Safety Report 7548765-4 (Version None)
Quarter: 2011Q2

REPORT INFORMATION
  Report Type: 
  Country: None (occurrence: None)
  Receive Date: 20110615
  Receipt Date: 20110609
  Transmission Date: 20111010
  Serious: Yes (Other)
  Sender: FDA-Public Use
  Company Number: US-B.I. PHARMACEUTICALS,INC./RIDGEFIELD-2011-BP-15023BP

PATIENT
  Sex: Female

DRUGS (8)
  1. BIDIL [Concomitant]
     Indication: CORONARY ARTERY DISEASE
     Route: 048
     Dates: start: 20110106, end: 20110107
  2. AMIODARONE HCL [Concomitant]
     Indication: CORONARY ARTERY DISEASE
     Dosage: 200 MG
     Route: 048
     Dates: start: 20110106, end: 20110107
  3. VITAMIN D [Concomitant]
     Route: 048
     Dates: start: 20110106, end: 20110107
  4. PRADAXA [Suspect]
     Dosage: 300 MG
     Route: 048
     Dates: start: 20110106, end: 20110107
  5. FUROSEMIDE [Concomitant]
     Indication: CORONARY ARTERY DISEASE
     Dosage: 20 MG
     Route: 048
     Dates: start: 20110106, end: 20110107
  6. ASPIRIN [Concomitant]
     Indication: CORONARY ARTERY DISEASE
     Dosage: 81 MG
     Route: 048
     Dates: start: 20110106, end: 20110107
  7. PLAVIX [Concomitant]
     Indication: CORONARY ARTERY DISEASE
     Dosage: 75 MG
     Route: 048
     Dates: start: 20110106, end: 20110107
  8. DIFLUCAN [Concomitant]
     Indication: LOCALISED INFECTION
     Route: 048
     Dates: start: 20110106, end: 20110107

REACTIONS (1)
  - HAEMORRHAGE [None]
